FAERS Safety Report 23555486 (Version 1)
Quarter: 2024Q1

REPORT INFORMATION
  Report Type: Spontaneous
  Country: US (occurrence: US)
  Receive Date: 20240222
  Receipt Date: 20240222
  Transmission Date: 20240410
  Serious: Yes (Other)
  Sender: FDA-Public Use
  Company Number: US-LANTHEUS-LMI-2023-00865

PATIENT
  Age: 31 Year
  Sex: Female
  Weight: 91 kg

DRUGS (1)
  1. DEFINITY [Suspect]
     Active Substance: PERFLUTREN
     Indication: Stress echocardiogram
     Dosage: UNK; (1 VIAL OF DEFINITY PREPARED IN 8.4 ML NORMAL SALINE)
     Route: 042
     Dates: start: 20230717, end: 20230717

REACTIONS (5)
  - Urticaria [Recovering/Resolving]
  - Erythema [Recovering/Resolving]
  - Swelling face [Recovering/Resolving]
  - Eye swelling [Recovering/Resolving]
  - Pruritus [Recovering/Resolving]

NARRATIVE: CASE EVENT DATE: 20230717
